FAERS Safety Report 19212520 (Version 2)
Quarter: 2021Q2

REPORT INFORMATION
  Report Type: Spontaneous
  Country: JP (occurrence: JP)
  Receive Date: 20210504
  Receipt Date: 20210518
  Transmission Date: 20210717
  Serious: Yes (Other)
  Sender: FDA-Public Use
  Company Number: JP-009507513-2104JPN002159J

PATIENT
  Age: 5 Decade
  Sex: Male

DRUGS (1)
  1. NOXAFIL [Suspect]
     Active Substance: POSACONAZOLE
     Dosage: UNK
     Route: 048

REACTIONS (3)
  - Graft versus host disease [Unknown]
  - Nausea [Unknown]
  - Decreased appetite [Unknown]
